FAERS Safety Report 24885067 (Version 1)
Quarter: 2025Q1

REPORT INFORMATION
  Report Type: Spontaneous
  Country: CA (occurrence: CA)
  Receive Date: 20250124
  Receipt Date: 20250124
  Transmission Date: 20250409
  Serious: Yes (Other)
  Sender: PFIZER
  Company Number: CA-PFIZER INC-202500014215

PATIENT
  Sex: Female

DRUGS (13)
  1. BOSUTINIB [Suspect]
     Active Substance: BOSUTINIB
  2. AZACITIDINE [Suspect]
     Active Substance: AZACITIDINE
     Route: 065
  3. IMATINIB MESYLATE [Suspect]
     Active Substance: IMATINIB MESYLATE
     Indication: Chronic myeloid leukaemia
  4. AMIODARONE [Concomitant]
     Active Substance: AMIODARONE
  5. APIXABAN [Concomitant]
     Active Substance: APIXABAN
  6. ASCIMINIB [Concomitant]
     Active Substance: ASCIMINIB
  7. BUDESONIDE\FORMOTEROL FUMARATE [Concomitant]
     Active Substance: BUDESONIDE\FORMOTEROL FUMARATE
  8. LASIX [Concomitant]
     Active Substance: FUROSEMIDE
  9. LEVOTHYROXINE SODIUM [Concomitant]
     Active Substance: LEVOTHYROXINE SODIUM
  10. LOPERAMIDE [Concomitant]
     Active Substance: LOPERAMIDE
  11. METOPROLOL [Concomitant]
     Active Substance: METOPROLOL
  12. ALBUTEROL [Concomitant]
     Active Substance: ALBUTEROL
  13. ZOPICLONE [Concomitant]
     Active Substance: ZOPICLONE

REACTIONS (4)
  - Thrombosis [Unknown]
  - Ventricular tachycardia [Unknown]
  - Cardiac disorder [Unknown]
  - Platelet count abnormal [Unknown]
